FAERS Safety Report 25277089 (Version 1)
Quarter: 2025Q2

REPORT INFORMATION
  Report Type: Spontaneous
  Country: CN (occurrence: CN)
  Receive Date: 20250507
  Receipt Date: 20250507
  Transmission Date: 20250716
  Serious: Yes (Other)
  Sender: GE HEALTHCARE
  Company Number: None

PATIENT
  Age: 50 Year
  Sex: Male
  Weight: 73 kg

DRUGS (1)
  1. VISIPAQUE [Suspect]
     Active Substance: IODIXANOL
     Indication: Computerised tomogram heart
     Route: 050
     Dates: start: 20250425, end: 20250425

REACTIONS (6)
  - External ear pain [Recovered/Resolved]
  - Upper respiratory tract congestion [Recovered/Resolved]
  - Oropharyngeal pain [Recovered/Resolved]
  - Neck pain [Recovered/Resolved]
  - Lymphadenopathy [Recovered/Resolved]
  - Type IV hypersensitivity reaction [Recovered/Resolved]

NARRATIVE: CASE EVENT DATE: 20250425
